FAERS Safety Report 12971444 (Version 1)
Quarter: 2016Q4

REPORT INFORMATION
  Report Type: Spontaneous
  Country: US (occurrence: US)
  Receive Date: 20161123
  Receipt Date: 20161123
  Transmission Date: 20170207
  Serious: No
  Sender: FDA-Public Use
  Company Number: US-JAZZ-2016-US-020229

PATIENT
  Sex: Female

DRUGS (10)
  1. RITALIN [Concomitant]
     Active Substance: METHYLPHENIDATE HYDROCHLORIDE
  2. LEXAPRO [Concomitant]
     Active Substance: ESCITALOPRAM OXALATE
  3. ADVIL (MEFENAMIC ACID) [Concomitant]
     Active Substance: MEFENAMIC ACID
  4. ALKA SELTZER PLUS COLD             /00693501/ [Concomitant]
  5. XYREM [Suspect]
     Active Substance: SODIUM OXYBATE
     Indication: NARCOLEPSY
     Dosage: 2.25 G, BID
     Route: 048
     Dates: start: 201609
  6. ISOLEUCINE [Concomitant]
     Active Substance: ISOLEUCINE
  7. CONCERTA [Concomitant]
     Active Substance: METHYLPHENIDATE HYDROCHLORIDE
  8. METHYLPHENIDATE. [Concomitant]
     Active Substance: METHYLPHENIDATE
  9. IMPLANON [Concomitant]
     Active Substance: ETONOGESTREL
  10. GABAPENTIN. [Concomitant]
     Active Substance: GABAPENTIN

REACTIONS (1)
  - Polyuria [Unknown]
